FAERS Safety Report 18330099 (Version 10)
Quarter: 2021Q1

REPORT INFORMATION
  Report Type: Other
  Country: CA (occurrence: CA)
  Receive Date: 20200930
  Receipt Date: 20210312
  Transmission Date: 20210419
  Serious: Yes (Hospitalization, Other)
  Sender: FDA-Public Use
  Company Number: CA-ROCHE-1737396

PATIENT
  Age: 22 Year
  Sex: Female
  Weight: 66 kg

DRUGS (58)
  1. BENADRYL [Concomitant]
     Active Substance: DIPHENHYDRAMINE HYDROCHLORIDE
     Route: 042
     Dates: start: 20160425, end: 20180731
  2. BENADRYL [Concomitant]
     Active Substance: DIPHENHYDRAMINE HYDROCHLORIDE
     Route: 042
     Dates: start: 20200326, end: 20200326
  3. SOLU?CORTEF [Concomitant]
     Active Substance: HYDROCORTISONE SODIUM SUCCINATE
     Route: 042
     Dates: start: 20200826
  4. SOLU?MEDROL [Concomitant]
     Active Substance: METHYLPREDNISOLONE SODIUM SUCCINATE
     Dates: start: 20190311, end: 20190311
  5. ACTEMRA [Suspect]
     Active Substance: TOCILIZUMAB
     Indication: JUVENILE IDIOPATHIC ARTHRITIS
     Dosage: NO PIRS RECEIVED BETWEEN 20?JAN?2017 TO 04?JUN?2018; DOSAGE NOTED ACCORDING TO PRESCRIPTION ENROLMEN
     Route: 042
     Dates: start: 20160307, end: 20170512
  6. CIPRALEX [Suspect]
     Active Substance: ESCITALOPRAM OXALATE
     Indication: PRODUCT USED FOR UNKNOWN INDICATION
     Route: 065
     Dates: start: 2020
  7. INDOCID [Suspect]
     Active Substance: INDOMETHACIN
     Indication: PRODUCT USED FOR UNKNOWN INDICATION
     Route: 065
  8. SOLU?CORTEF [Concomitant]
     Active Substance: HYDROCORTISONE SODIUM SUCCINATE
     Route: 042
     Dates: start: 20181023, end: 20181023
  9. FOLIC ACID. [Concomitant]
     Active Substance: FOLIC ACID
     Indication: PRODUCT USED FOR UNKNOWN INDICATION
  10. SOLU?MEDROL [Concomitant]
     Active Substance: METHYLPREDNISOLONE SODIUM SUCCINATE
     Route: 042
     Dates: start: 20181120, end: 20190115
  11. TYLENOL [Concomitant]
     Active Substance: ACETAMINOPHEN
     Indication: PREMEDICATION
     Dosage: ONGOING:YES
     Route: 048
     Dates: start: 20181218, end: 20181218
  12. ACTEMRA [Suspect]
     Active Substance: TOCILIZUMAB
     Route: 042
     Dates: start: 20200423, end: 20200423
  13. ACTEMRA [Suspect]
     Active Substance: TOCILIZUMAB
     Dosage: ADDITIONAL BATCH/LOT FROM 23?APR?2020: B2083 (31?OCT?2021
     Route: 042
     Dates: start: 20191204, end: 20200423
  14. ACTEMRA [Suspect]
     Active Substance: TOCILIZUMAB
     Dosage: NO PIRS RECEIVED BETWEEN 20/JAN/2017 TO 04/JUN/2018
     Route: 042
     Dates: start: 20190830
  15. SOLU?CORTEF [Concomitant]
     Active Substance: HYDROCORTISONE SODIUM SUCCINATE
     Route: 042
     Dates: start: 20190211, end: 20190211
  16. SOLU?MEDROL [Concomitant]
     Active Substance: METHYLPREDNISOLONE SODIUM SUCCINATE
     Route: 042
     Dates: start: 20180925, end: 20180925
  17. SOLU?MEDROL [Concomitant]
     Active Substance: METHYLPREDNISOLONE SODIUM SUCCINATE
     Route: 042
     Dates: start: 20191029, end: 20191029
  18. TYLENOL [Concomitant]
     Active Substance: ACETAMINOPHEN
     Route: 048
     Dates: start: 20190311, end: 20190311
  19. DOMPERIDONE [Concomitant]
     Active Substance: DOMPERIDONE
     Indication: PRODUCT USED FOR UNKNOWN INDICATION
  20. METHOTREXATE. [Suspect]
     Active Substance: METHOTREXATE
     Indication: PRODUCT USED FOR UNKNOWN INDICATION
     Route: 065
  21. SOLU?CORTEF [Concomitant]
     Active Substance: HYDROCORTISONE SODIUM SUCCINATE
     Route: 042
     Dates: start: 20160629, end: 20180828
  22. SOLU?CORTEF [Concomitant]
     Active Substance: HYDROCORTISONE SODIUM SUCCINATE
     Route: 042
     Dates: start: 20190702, end: 20190808
  23. SOLU?CORTEF [Concomitant]
     Active Substance: HYDROCORTISONE SODIUM SUCCINATE
     Dosage: ONGOING
     Route: 042
     Dates: start: 20191029, end: 20200603
  24. SOLU?CORTEF [Concomitant]
     Active Substance: HYDROCORTISONE SODIUM SUCCINATE
     Route: 042
     Dates: start: 20200728
  25. SUCRALFATE. [Concomitant]
     Active Substance: SUCRALFATE
     Indication: PRODUCT USED FOR UNKNOWN INDICATION
  26. CORTISONE [Concomitant]
     Active Substance: CORTISONE
     Route: 030
     Dates: start: 20200422
  27. CIPRALEX [Suspect]
     Active Substance: ESCITALOPRAM OXALATE
     Route: 065
     Dates: start: 2020
  28. BENADRYL [Concomitant]
     Active Substance: DIPHENHYDRAMINE HYDROCHLORIDE
     Route: 042
     Dates: start: 20200728
  29. BENADRYL [Concomitant]
     Active Substance: DIPHENHYDRAMINE HYDROCHLORIDE
     Route: 042
     Dates: start: 20190808, end: 20190808
  30. BENADRYL [Concomitant]
     Active Substance: DIPHENHYDRAMINE HYDROCHLORIDE
     Route: 042
     Dates: start: 20190830, end: 20200303
  31. BENADRYL [Concomitant]
     Active Substance: DIPHENHYDRAMINE HYDROCHLORIDE
     Route: 042
     Dates: start: 20200423, end: 20200603
  32. PANTOLOC [Concomitant]
     Active Substance: PANTOPRAZOLE SODIUM
     Indication: PRODUCT USED FOR UNKNOWN INDICATION
  33. SOLU?MEDROL [Concomitant]
     Active Substance: METHYLPREDNISOLONE SODIUM SUCCINATE
     Route: 042
     Dates: start: 20190604, end: 20190604
  34. TYLENOL [Concomitant]
     Active Substance: ACETAMINOPHEN
     Route: 048
     Dates: start: 20190702, end: 20190702
  35. ACTEMRA [Suspect]
     Active Substance: TOCILIZUMAB
     Dosage: INFUSION #14 NO PIRS RECEIVED BETWEEN 20?JAN?2017 TO 04?JUN?2018;?DOSAGE NOTED ACCORDING TO PRESCRIP
     Route: 042
     Dates: start: 20170609, end: 20190830
  36. ACTEMRA [Suspect]
     Active Substance: TOCILIZUMAB
     Dosage: PATIENT RECEIVED TWO DOSES PRIOR TO RPAP ENROLMENT. DOSAGE/INFUSION DETAILS WERE NOT PROVIDED, NOR B
     Route: 042
     Dates: start: 201601, end: 201602
  37. ACTEMRA [Suspect]
     Active Substance: TOCILIZUMAB
     Dosage: ADDITIONAL BATCH/LOT FROM 26?AUG?2020: B2083 31?OCT?202
     Route: 042
     Dates: start: 20200603, end: 20200826
  38. SOLU?CORTEF [Concomitant]
     Active Substance: HYDROCORTISONE SODIUM SUCCINATE
     Indication: PREMEDICATION
     Dosage: ONGOING?YES
     Route: 042
     Dates: start: 20160425, end: 20160425
  39. DOMPERIDONE [Concomitant]
     Active Substance: DOMPERIDONE
     Indication: PRODUCT USED FOR UNKNOWN INDICATION
  40. PREDNISONE. [Concomitant]
     Active Substance: PREDNISONE
     Dosage: ONGOING; 20?15?10?5 MG FOR 4 WEEKS
     Dates: start: 20191123
  41. CAL?D [Concomitant]
     Dosage: ONGOING
     Route: 048
     Dates: start: 20201010
  42. PIROCAM [Concomitant]
  43. METHOTREXATE. [Concomitant]
     Active Substance: METHOTREXATE
  44. ACTEMRA [Suspect]
     Active Substance: TOCILIZUMAB
     Indication: STILL^S DISEASE
     Dosage: ONGOING, 20?15?10?5 MG FOR 4 WEEKS
     Route: 042
     Dates: start: 20160108, end: 201602
  45. ACTEMRA [Suspect]
     Active Substance: TOCILIZUMAB
     Dosage: ADDITIONAL BATCH/LOT FROM 29?OCT?2019: B2086 (31?MAY?2021)
     Route: 042
     Dates: start: 20191003, end: 20191029
  46. ACTEMRA [Suspect]
     Active Substance: TOCILIZUMAB
     Route: 042
     Dates: start: 20191205
  47. ACTEMRA [Suspect]
     Active Substance: TOCILIZUMAB
     Dosage: ADDITIONAL BATCH/LOT FROM 10?FEB?2021: B3033 30??NOV?2022
     Route: 042
     Dates: start: 20200917, end: 20210210
  48. ACTEMRA [Suspect]
     Active Substance: TOCILIZUMAB
     Dosage: ADDITIONAL BATCH/LOT FROM 03?MAR?2021: B3033B27 (30?NOV?2022)
     Route: 042
  49. BENADRYL [Concomitant]
     Active Substance: DIPHENHYDRAMINE HYDROCHLORIDE
     Route: 042
     Dates: start: 20180828, end: 20180828
  50. SOLU?CORTEF [Concomitant]
     Active Substance: HYDROCORTISONE SODIUM SUCCINATE
     Dosage: ONGOING
     Route: 042
     Dates: start: 20190408, end: 20190506
  51. SOLU?CORTEF [Concomitant]
     Active Substance: HYDROCORTISONE SODIUM SUCCINATE
     Dosage: ONGOING
     Route: 042
     Dates: start: 20200728
  52. NOVOPIROCAM [Concomitant]
     Indication: PRODUCT USED FOR UNKNOWN INDICATION
  53. SOLU?MEDROL [Concomitant]
     Active Substance: METHYLPREDNISOLONE SODIUM SUCCINATE
     Indication: PREMEDICATION
     Route: 042
     Dates: start: 20160531, end: 20160531
  54. SOLU?MEDROL [Concomitant]
     Active Substance: METHYLPREDNISOLONE SODIUM SUCCINATE
     Route: 042
     Dates: start: 20190830, end: 20191003
  55. ACTEMRA [Suspect]
     Active Substance: TOCILIZUMAB
     Dosage: EXPIRY DATE 31?OCT?2020, 30?NOV?2020?NO PIRS RECEIVED BETWEEN 20?JAN?2017 TO 04?JUN?2018;?DOSAGE NOT
     Route: 042
     Dates: start: 20170811
  56. BENADRYL [Concomitant]
     Active Substance: DIPHENHYDRAMINE HYDROCHLORIDE
     Route: 042
     Dates: start: 20180925, end: 20190702
  57. TYLENOL [Concomitant]
     Active Substance: ACETAMINOPHEN
     Route: 048
     Dates: start: 20190506, end: 20190506
  58. TYLENOL [Concomitant]
     Active Substance: ACETAMINOPHEN
     Route: 048
     Dates: start: 20191204, end: 20191204

REACTIONS (53)
  - Drug intolerance [Unknown]
  - Heart rate increased [Unknown]
  - Toothache [Unknown]
  - Vascular rupture [Unknown]
  - Arthritis [Unknown]
  - Feeling cold [Unknown]
  - Anxiety [Not Recovered/Not Resolved]
  - Poor venous access [Unknown]
  - Injection site pruritus [Recovered/Resolved]
  - Headache [Recovering/Resolving]
  - Feeling hot [Unknown]
  - Fatigue [Unknown]
  - Weight increased [Recovering/Resolving]
  - Weight decreased [Unknown]
  - Panic reaction [Recovered/Resolved]
  - Hyperthermia [Unknown]
  - Infusion related reaction [Not Recovered/Not Resolved]
  - Dizziness [Recovered/Resolved]
  - Diarrhoea [Unknown]
  - Ear pain [Recovered/Resolved]
  - Rash [Not Recovered/Not Resolved]
  - Body temperature abnormal [Unknown]
  - Lymphadenitis [Unknown]
  - Lip ulceration [Unknown]
  - Peripheral swelling [Not Recovered/Not Resolved]
  - Abdominal pain [Recovered/Resolved]
  - Infusion related reaction [Unknown]
  - Arthropathy [Unknown]
  - Oedema peripheral [Unknown]
  - Off label use [Unknown]
  - Pain [Unknown]
  - Gastroenteritis [Unknown]
  - Arthralgia [Unknown]
  - Heart rate increased [Unknown]
  - Vein disorder [Unknown]
  - External ear cellulitis [Recovered/Resolved]
  - Drug ineffective [Unknown]
  - Body temperature increased [Unknown]
  - Pharyngitis [Unknown]
  - Dizziness [Unknown]
  - Discomfort [Unknown]
  - Nausea [Unknown]
  - Fall [Unknown]
  - Investigation abnormal [Unknown]
  - Body temperature increased [Unknown]
  - Oxygen saturation decreased [Unknown]
  - Urinary tract infection [Recovered/Resolved]
  - Palpitations [Recovered/Resolved]
  - Crying [Recovered/Resolved]
  - Therapeutic product effect decreased [Unknown]
  - Blood pressure diastolic abnormal [Unknown]
  - Intentional product misuse [Unknown]
  - Mouth ulceration [Unknown]

NARRATIVE: CASE EVENT DATE: 2016
